FAERS Safety Report 12388396 (Version 1)
Quarter: 2016Q2

REPORT INFORMATION
  Report Type: Spontaneous
  Country: US (occurrence: None)
  Receive Date: 20160519
  Receipt Date: 20160519
  Transmission Date: 20160815
  Serious: Yes (Other)
  Sender: FDA-Public Use
  Company Number: None

PATIENT
  Age: 48 Year
  Sex: Female
  Weight: 56.7 kg

DRUGS (7)
  1. DOCETAXEL SANOFI AVENTIS [Suspect]
     Active Substance: DOCETAXEL
     Indication: BREAST CANCER
     Dosage: INTO A VEIN
     Route: 042
     Dates: start: 20140619, end: 20141106
  2. MINOXIDIL. [Concomitant]
     Active Substance: MINOXIDIL
  3. CARBOPLATIN. [Suspect]
     Active Substance: CARBOPLATIN
  4. HERCEPTIN [Suspect]
     Active Substance: TRASTUZUMAB
  5. TAMOXIFEN [Concomitant]
     Active Substance: TAMOXIFEN
  6. VITAMIN D [Concomitant]
     Active Substance: CHOLECALCIFEROL
  7. BIOTIN [Concomitant]
     Active Substance: BIOTIN

REACTIONS (1)
  - Alopecia [None]
